FAERS Safety Report 5066198-X (Version None)
Quarter: 2006Q3

REPORT INFORMATION
  Report Type: 
  Country: None (occurrence: None)
  Receive Date: 20060703
  Receipt Date: 20060406
  Transmission Date: 20061208
  Serious: Yes (Other)
  Sender: FDA-Public Use
  Company Number: ENTC2006-0105

PATIENT
  Sex: Female

DRUGS (2)
  1. STALEVO 50 [Suspect]
     Indication: PARKINSON'S DISEASE
     Dosage: 100 MG Q3H, ORAL
     Route: 048
  2. SINEMET [Concomitant]

REACTIONS (3)
  - DRUG EFFECT DECREASED [None]
  - DYSSTASIA [None]
  - TREMOR [None]
